FAERS Safety Report 5071174-7 (Version None)
Quarter: 2006Q3

REPORT INFORMATION
  Report Type: 
  Country: None (occurrence: None)
  Receive Date: 20060804
  Receipt Date: 20060320
  Transmission Date: 20061208
  Serious: No
  Sender: FDA-Public Use
  Company Number: US-GLAXOSMITHKLINE-A0598190A

PATIENT
  Age: 40 Year

DRUGS (1)
  1. NICORETTE [Suspect]
     Dates: start: 20060316, end: 20060316

REACTIONS (4)
  - DIARRHOEA [None]
  - DYSPNOEA [None]
  - TREMOR [None]
  - VOMITING [None]
